FAERS Safety Report 18551589 (Version 8)
Quarter: 2021Q2

REPORT INFORMATION
  Report Type: Report from Study
  Country: CO (occurrence: CO)
  Receive Date: 20201126
  Receipt Date: 20210511
  Transmission Date: 20210717
  Serious: Yes (Death, Life-Threatening, Hospitalization, Other)
  Sender: FDA-Public Use
  Company Number: CO-SHIRE-CO202029879

PATIENT
  Age: 3 Year
  Sex: Male
  Weight: 10 kg

DRUGS (1)
  1. HUMAN IMMUNOGLOBULIN; HYALURONIDASE [Suspect]
     Active Substance: HUMAN IMMUNOGLOBULIN G\HYALURONIDASE RECOMBINANT HUMAN
     Indication: PRIMARY IMMUNODEFICIENCY SYNDROME
     Dosage: 10 GRAM, 1X A MONTH
     Route: 058
     Dates: start: 20200709, end: 20210408

REACTIONS (27)
  - Endocarditis bacterial [Recovering/Resolving]
  - Malnutrition [Not Recovered/Not Resolved]
  - Malaria [Not Recovered/Not Resolved]
  - Dyspnoea [Fatal]
  - Jaundice [Not Recovered/Not Resolved]
  - Mouth haemorrhage [Not Recovered/Not Resolved]
  - Splenomegaly [Unknown]
  - Feeling of despair [Unknown]
  - Pleural effusion [Unknown]
  - Cardiac failure high output [Unknown]
  - General physical health deterioration [Unknown]
  - Blood pressure decreased [Unknown]
  - Device related bacteraemia [Not Recovered/Not Resolved]
  - Oesophageal varices haemorrhage [Not Recovered/Not Resolved]
  - Pallor [Not Recovered/Not Resolved]
  - Blood pressure abnormal [Unknown]
  - Cardiac valve disease [Unknown]
  - Pyrexia [Unknown]
  - Decreased appetite [Unknown]
  - Hepatic failure [Unknown]
  - Renal failure [Not Recovered/Not Resolved]
  - Terminal state [Not Recovered/Not Resolved]
  - Haemoglobin decreased [Not Recovered/Not Resolved]
  - Haematemesis [Not Recovered/Not Resolved]
  - Haematochezia [Not Recovered/Not Resolved]
  - Asthenia [Not Recovered/Not Resolved]
  - Depressed mood [Unknown]

NARRATIVE: CASE EVENT DATE: 20200907
